FAERS Safety Report 10398194 (Version 1)
Quarter: 2014Q1

REPORT INFORMATION
  Report Type: Spontaneous
  Country: US (occurrence: None)
  Receive Date: 20130815
  Receipt Date: 20130815
  Transmission Date: 20141002
  Serious: Yes (Other)
  Sender: FDA-Public Use
  Company Number: ADR-2012-01351

PATIENT
  Sex: Female

DRUGS (3)
  1. BACLOFENINTRATHECAL (BACLOFEN INJECTION) [Suspect]
     Indication: MUSCLE SPASTICITY
  2. CLONIDINE [Concomitant]
  3. MORPHINE INTRATHECAL [Concomitant]

REACTIONS (5)
  - No therapeutic response [None]
  - Arthralgia [None]
  - Implant site pain [None]
  - Pain [None]
  - Pain in extremity [None]
